FAERS Safety Report 5720910-2 (Version None)
Quarter: 2008Q2

REPORT INFORMATION
  Report Type: 
  Country: None (occurrence: None)
  Receive Date: 20080425
  Receipt Date: 20080425
  Transmission Date: 20081010
  Serious: Yes (Other)
  Sender: FDA-Public Use
  Company Number: None

PATIENT
  Age: 52 Year
  Sex: Female
  Weight: 75.7507 kg

DRUGS (1)
  1. ZYFLO CR [Suspect]
     Indication: ASTHMA
     Dosage: 2 TABS - HOUR AFTER MEALS- MORN + NITE PO  3 WEEKS, STOPPED 1 WK
     Route: 048
     Dates: start: 20080401, end: 20080422

REACTIONS (6)
  - BURNING SENSATION [None]
  - DRUG HYPERSENSITIVITY [None]
  - FACIAL PAIN [None]
  - HEADACHE [None]
  - PHOTOPHOBIA [None]
  - RASH [None]
